FAERS Safety Report 6968249-1 (Version None)
Quarter: 2010Q3

REPORT INFORMATION
  Report Type: 
  Country: None (occurrence: None)
  Receive Date: 20100907
  Receipt Date: 20100824
  Transmission Date: 20110219
  Serious: Yes (Hospitalization, Other)
  Sender: FDA-Public Use
  Company Number: US-ELI_LILLY_AND_COMPANY-US201008007450

PATIENT
  Sex: Female

DRUGS (8)
  1. FORTEO [Suspect]
     Indication: OSTEOPOROSIS
     Dosage: 20 UG, DAILY (1/D)
  2. DILTIAZEM [Concomitant]
     Dosage: UNK, DAILY (1/D)
  3. NEXIUM [Concomitant]
     Dosage: UNK, DAILY (1/D)
  4. LEVOTHYROXINE [Concomitant]
     Dosage: 25 MG, DAILY (1/D)
  5. SIMVASTATIN [Concomitant]
     Dosage: 5 MG, DAILY (1/D)
  6. POTASSIUM [Concomitant]
     Dosage: UNK, DAILY (1/D)
  7. WARFARIN SODIUM [Concomitant]
     Dosage: 5 MG, DAILY (1/D)
  8. SOTALOL [Concomitant]
     Dosage: 120 MG, EVERY 12 HOURS

REACTIONS (2)
  - CARDIAC PACEMAKER INSERTION [None]
  - TRANSIENT ISCHAEMIC ATTACK [None]
